FAERS Safety Report 6906133-X (Version None)
Quarter: 2010Q3

REPORT INFORMATION
  Report Type: 
  Country: None (occurrence: None)
  Receive Date: 20100803
  Receipt Date: 20100803
  Transmission Date: 20110219
  Serious: No
  Sender: FDA-Public Use
  Company Number: None

PATIENT
  Age: 77 Year
  Sex: Female
  Weight: 68.0396 kg

DRUGS (1)
  1. NITROFUR-MACR 100 MG MYLAN [Suspect]
     Indication: URINARY TRACT INFECTION
     Dosage: PRESCRIBED ONE TABLET TWICE DAILY PO, TOOK ONE TABLET
     Route: 048
     Dates: start: 20100731, end: 20100731

REACTIONS (7)
  - ASTHENIA [None]
  - CHILLS [None]
  - FEAR [None]
  - HYPOVENTILATION [None]
  - INFLUENZA [None]
  - NAUSEA [None]
  - PYREXIA [None]
